FAERS Safety Report 24267186 (Version 2)
Quarter: 2024Q3

REPORT INFORMATION
  Report Type: Report from Study
  Country: US (occurrence: US)
  Receive Date: 20240830
  Receipt Date: 20240923
  Transmission Date: 20241017
  Serious: Yes (Hospitalization, Other)
  Sender: JOHNSON AND JOHNSON
  Company Number: US-JNJFOC-20240865824

PATIENT
  Age: 55 Year
  Sex: Female

DRUGS (8)
  1. SPRAVATO [Suspect]
     Active Substance: ESKETAMINE
     Indication: Depression
     Dosage: ^56 MG, 3 TOTAL DOSES^
     Dates: start: 20240812, end: 20240819
  2. SPRAVATO [Suspect]
     Active Substance: ESKETAMINE
     Indication: Major depression
     Dosage: ^84 MG, RECENT DOSE ADMINISTERED^
     Dates: start: 20240821, end: 20240821
  3. PRAZOSIN [Concomitant]
     Active Substance: PRAZOSIN\PRAZOSIN HYDROCHLORIDE
     Dosage: HS
     Route: 065
  4. LORAZEPAM [Concomitant]
     Active Substance: LORAZEPAM
     Route: 065
  5. SERTRALINE [Concomitant]
     Active Substance: SERTRALINE HYDROCHLORIDE
     Route: 065
  6. CYMBALTA [Concomitant]
     Active Substance: DULOXETINE HYDROCHLORIDE
     Route: 065
  7. LAMOTRIGINE [Concomitant]
     Active Substance: LAMOTRIGINE
     Route: 065
  8. VYVANSE [Concomitant]
     Active Substance: LISDEXAMFETAMINE DIMESYLATE
     Route: 065

REACTIONS (5)
  - Loss of consciousness [Recovered/Resolved]
  - Gastrointestinal sounds abnormal [Recovered/Resolved]
  - Dissociation [Recovered/Resolved]
  - Psychotic disorder [Recovering/Resolving]
  - Sedation [Recovered/Resolved]

NARRATIVE: CASE EVENT DATE: 20240821
